FAERS Safety Report 19456343 (Version 1)
Quarter: 2021Q2

REPORT INFORMATION
  Report Type: Spontaneous
  Country: US (occurrence: US)
  Receive Date: 20210624
  Receipt Date: 20210624
  Transmission Date: 20210717
  Serious: No
  Sender: FDA-Public Use
  Company Number: None

PATIENT
  Age: 90 Year
  Sex: Male
  Weight: 72.23 kg

DRUGS (8)
  1. ABIRATERONE. [Suspect]
     Active Substance: ABIRATERONE ACETATE
     Indication: PROSTATE CANCER
     Route: 048
     Dates: start: 20201003
  2. PREDNISONE. [Suspect]
     Active Substance: PREDNISONE
     Indication: PROSTATE CANCER
     Route: 048
     Dates: start: 20201005
  3. CALCIUM + D [Concomitant]
     Active Substance: CALCIUM\VITAMIN D
  4. BICALUTAMIDE. [Concomitant]
     Active Substance: BICALUTAMIDE
  5. PREDNISONE. [Concomitant]
     Active Substance: PREDNISONE
  6. TAMSULOSIN [Concomitant]
     Active Substance: TAMSULOSIN
  7. XTANDI [Concomitant]
     Active Substance: ENZALUTAMIDE
  8. ELIQUIS [Concomitant]
     Active Substance: APIXABAN

REACTIONS (2)
  - Tremor [None]
  - Balance disorder [None]

NARRATIVE: CASE EVENT DATE: 20210624
